FAERS Safety Report 9518628 (Version 1)
Quarter: 2013Q3

REPORT INFORMATION
  Report Type: Spontaneous
  Country: US (occurrence: None)
  Receive Date: 20130910
  Receipt Date: 20130910
  Transmission Date: 20140515
  Serious: Yes (Hospitalization)
  Sender: FDA-Public Use
  Company Number: None

PATIENT
  Sex: Female
  Weight: 75.3 kg

DRUGS (1)
  1. XELODA [Suspect]
     Indication: CHOLANGIOCARCINOMA
     Dosage: 500MG AND 150MG  2 TABS BID EACH DOSE  PO?UNKNOWN APPROX. 8/13 TO PRESENT
     Route: 048
     Dates: start: 201308

REACTIONS (4)
  - Surgery [None]
  - Cardiac disorder [None]
  - Malaise [None]
  - Dyspnoea [None]
